FAERS Safety Report 21240796 (Version 6)
Quarter: 2023Q2

REPORT INFORMATION
  Report Type: Report from Study
  Country: CA (occurrence: CA)
  Receive Date: 20220823
  Receipt Date: 20230503
  Transmission Date: 20230721
  Serious: Yes (Other)
  Sender: FDA-Public Use
  Company Number: CA-JNJFOC-20220740457

PATIENT
  Age: 59 Year
  Sex: Female
  Weight: 49 kg

DRUGS (3)
  1. REMICADE [Suspect]
     Active Substance: INFLIXIMAB
     Indication: Crohn^s disease
     Dosage: ON 19-JUL-2022, PATIENT RECEIVED 142TH INFLIXIMAB RECOMBINANT INFUSION OF 300MG AND PARTIAL HARVEY-B
     Route: 041
     Dates: start: 20081203
  2. REMICADE [Suspect]
     Active Substance: INFLIXIMAB
     Route: 041
  3. REMICADE [Suspect]
     Active Substance: INFLIXIMAB
     Dosage: ON 12-JAN-2023, PATIENT RECEIVED 147TH INFLIXIMAB INFUSION AT 300 MG AND PARTIAL HARVEY-BRADSHAW COM
     Route: 041

REACTIONS (8)
  - Nephrolithiasis [Unknown]
  - Lung neoplasm malignant [Not Recovered/Not Resolved]
  - Coeliac disease [Unknown]
  - Polyp [Unknown]
  - Frequent bowel movements [Unknown]
  - Diarrhoea [Unknown]
  - Abdominal pain lower [Unknown]
  - Off label use [Unknown]

NARRATIVE: CASE EVENT DATE: 20220620
